FAERS Safety Report 8770474 (Version 4)
Quarter: 2013Q2

REPORT INFORMATION
  Report Type: Spontaneous
  Country: US (occurrence: US)
  Receive Date: 20120906
  Receipt Date: 20130403
  Transmission Date: 20140414
  Serious: Yes (Hospitalization)
  Sender: FDA-Public Use
  Company Number: US-B.I. PHARMACEUTICALS,INC./RIDGEFIELD-2012-BP-21399BP

PATIENT
  Age: 81 Year
  Sex: Male
  Weight: 74.84 kg

DRUGS (14)
  1. PRADAXA [Suspect]
     Indication: ATRIAL FIBRILLATION
     Dosage: 300 MG
     Route: 048
     Dates: start: 20111018, end: 20111130
  2. ASPIRIN [Suspect]
     Dosage: 81 MG
  3. ALEVE [Suspect]
     Indication: ARTHRALGIA
  4. VITAMIN D [Concomitant]
     Dosage: 2000 U
  5. MULTAQ [Concomitant]
     Dosage: 800 MG
  6. FINASTERIDE [Concomitant]
     Dosage: 5 MG
  7. LOSARTAN [Concomitant]
     Dosage: 25 MG
  8. NASONEX [Concomitant]
  9. MULTIVITAMINS [Concomitant]
  10. OMEPRAZOLE [Concomitant]
     Dosage: 10 MG
  11. CRESTOR [Concomitant]
     Dosage: 10 MG
  12. TAMSULOSIN [Concomitant]
     Dosage: 0.4 MG
     Dates: start: 2008, end: 2012
  13. AVODART [Concomitant]
     Dates: start: 2011
  14. AMIODARONE [Concomitant]
     Dates: start: 2010, end: 2012

REACTIONS (2)
  - Gastrointestinal haemorrhage [Unknown]
  - Anaemia [Unknown]
